FAERS Safety Report 4577637-2 (Version None)
Quarter: 2005Q1

REPORT INFORMATION
  Report Type: 
  Country: None (occurrence: None)
  Receive Date: 20050127
  Receipt Date: 20040824
  Transmission Date: 20050727
  Serious: No
  Sender: FDA-Public Use
  Company Number: USA040876397

PATIENT
  Age: 8 Year
  Sex: Female
  Weight: 23 kg

DRUGS (1)
  1. STRATTERA [Suspect]
     Dates: start: 20040201

REACTIONS (3)
  - HIRSUTISM [None]
  - HYPERTRICHOSIS [None]
  - WEIGHT DECREASED [None]
